FAERS Safety Report 9196261 (Version 1)
Quarter: 2013Q1

REPORT INFORMATION
  Report Type: Spontaneous
  Country: IT (occurrence: IT)
  Receive Date: 20130328
  Receipt Date: 20130328
  Transmission Date: 20140127
  Serious: Yes (Other)
  Sender: FDA-Public Use
  Company Number: IT-JNJFOC-20130311423

PATIENT
  Age: 21 Year
  Sex: Female

DRUGS (1)
  1. RISPERDAL [Suspect]
     Indication: SELF INJURIOUS BEHAVIOUR
     Dosage: 10 TABLETS
     Route: 048
     Dates: start: 20130317, end: 20130317

REACTIONS (3)
  - Intentional overdose [Unknown]
  - Vomiting [Unknown]
  - Sluggishness [Unknown]
